FAERS Safety Report 5340254-0 (Version None)
Quarter: 2007Q2

REPORT INFORMATION
  Report Type: 
  Country: None (occurrence: None)
  Receive Date: 20070531
  Receipt Date: 20070523
  Transmission Date: 20071010
  Serious: Yes (Other)
  Sender: FDA-Public Use
  Company Number: US-ASTRAZENECA-2007UW12769

PATIENT
  Age: 54 Year
  Sex: Female
  Weight: 70.3 kg

DRUGS (3)
  1. ARIMIDEX [Suspect]
     Indication: BREAST CANCER
     Route: 048
  2. ARIMIDEX [Suspect]
     Route: 048
     Dates: start: 20070501
  3. VYTORIN [Concomitant]

REACTIONS (2)
  - TENDONITIS [None]
  - TRIGGER FINGER [None]
